FAERS Safety Report 4707615-1 (Version None)
Quarter: 2005Q3

REPORT INFORMATION
  Report Type: 
  Country: None (occurrence: None)
  Receive Date: 20050706
  Receipt Date: 20050523
  Transmission Date: 20060218
  Serious: Yes (Hospitalization, Other)
  Sender: FDA-Public Use
  Company Number: JP-MERCK-0505USA03426

PATIENT
  Age: 20 Year
  Sex: Male

DRUGS (8)
  1. PEPCID [Suspect]
     Indication: PROPHYLAXIS AGAINST GASTROINTESTINAL ULCER
     Route: 042
     Dates: start: 20050502, end: 20050506
  2. CEFAMEZIN [Concomitant]
     Indication: PROPHYLAXIS
     Route: 042
     Dates: start: 20050506, end: 20050526
  3. PENTCILLIN [Suspect]
     Indication: MYOCARDITIS
     Route: 042
     Dates: start: 20050504, end: 20050506
  4. BUSCOPAN [Suspect]
     Indication: INFECTION PROPHYLAXIS
     Route: 042
     Dates: start: 20050502, end: 20050502
  5. MEROPENEM [Suspect]
     Route: 065
     Dates: end: 20050509
  6. CEFMETAZON [Suspect]
     Indication: MYOCARDITIS
     Route: 042
     Dates: start: 20050502, end: 20050503
  7. LOXONIN [Concomitant]
     Indication: PYREXIA
     Route: 065
     Dates: start: 20050501
  8. METILON [Suspect]
     Indication: MYOCARDITIS
     Route: 042
     Dates: start: 20050502, end: 20050502

REACTIONS (1)
  - EOSINOPHILIC MYOCARDITIS [None]
